FAERS Safety Report 6086728-9 (Version None)
Quarter: 2009Q1

REPORT INFORMATION
  Report Type: 
  Country: None (occurrence: None)
  Receive Date: 20090217
  Receipt Date: 20090202
  Transmission Date: 20090719
  Serious: Yes (Death)
  Sender: FDA-Public Use
  Company Number: CHPA2009US01660

PATIENT
  Age: 57 Year
  Sex: Female

DRUGS (6)
  1. DIPHENHYDRAMINE HCL [Suspect]
     Dosage: ORAL
     Route: 048
  2. BUSPIRONE HCL [Suspect]
     Dosage: ORAL
     Route: 048
  3. SERTRALINE [Suspect]
     Dosage: ORAL
     Route: 048
  4. ZOLPIDEM TARTRATE [Suspect]
     Dosage: ORAL
     Route: 048
  5. VALPROIC ACID [Suspect]
     Dosage: ORAL
     Route: 048
  6. AMLODIPINE [Suspect]
     Dosage: ORAL
     Route: 048

REACTIONS (1)
  - COMPLETED SUICIDE [None]
